FAERS Safety Report 24122374 (Version 2)
Quarter: 2024Q3

REPORT INFORMATION
  Report Type: Report from Study
  Country: US (occurrence: US)
  Receive Date: 20240723
  Receipt Date: 20240729
  Transmission Date: 20241017
  Serious: Yes (Other)
  Sender: ABBVIE
  Company Number: US-ABBVIE-5846144

PATIENT
  Age: 67 Year
  Sex: Female

DRUGS (1)
  1. CREON [Suspect]
     Active Substance: PANCRELIPASE AMYLASE\PANCRELIPASE LIPASE\PANCRELIPASE PROTEASE
     Indication: Pancreatic failure
     Dosage: FORM STRENGTH: 36000 UNIT
     Route: 048
     Dates: start: 20240712

REACTIONS (5)
  - Breast cancer recurrent [Recovering/Resolving]
  - Malaise [Not Recovered/Not Resolved]
  - Swelling face [Not Recovered/Not Resolved]
  - Erythema [Recovered/Resolved]
  - Sunburn [Not Recovered/Not Resolved]

NARRATIVE: CASE EVENT DATE: 20240701
